FAERS Safety Report 10071995 (Version 2)
Quarter: 2014Q2

REPORT INFORMATION
  Report Type: Spontaneous
  Country: US (occurrence: None)
  Receive Date: 20140314
  Receipt Date: 20140619
  Transmission Date: 20141212
  Serious: Yes (Death, Life-Threatening, Hospitalization, Other)
  Sender: FDA-Public Use
  Company Number: ADR-2014-00148

PATIENT
  Age: 35 Year
  Sex: Male

DRUGS (1)
  1. BACLOFEN [Suspect]
     Indication: MUSCLE SPASTICITY
     Dosage: 1322.2 MCG/DAY

REACTIONS (6)
  - Convulsion [None]
  - Drug withdrawal syndrome [None]
  - Respiratory failure [None]
  - Respiratory disorder [None]
  - Mental status changes [None]
  - Device malfunction [None]
